FAERS Safety Report 8834858 (Version 1)
Quarter: 2012Q4

REPORT INFORMATION
  Report Type: 
  Country: FR (occurrence: FR)
  Receive Date: 20121011
  Receipt Date: 20121011
  Transmission Date: 20130627
  Serious: Yes (Death, Hospitalization)
  Sender: FDA-Public Use
  Company Number: FR-BRISTOL-MYERS SQUIBB COMPANY-17013475

PATIENT
  Age: 58 Year
  Sex: Male

DRUGS (11)
  1. COUMADINE [Suspect]
     Indication: ARRHYTHMIA SUPRAVENTRICULAR
     Route: 048
  2. BURINEX [Concomitant]
     Dosage: in morning
  3. LERCAN [Concomitant]
  4. GALVUS [Concomitant]
     Dosage: 1 in the morning, 1 in the eve
  5. LANTUS [Concomitant]
     Dosage: In the evening
  6. PRAVASTATINE [Concomitant]
     Dosage: in the eve.
  7. REPAGLINIDE [Concomitant]
     Dosage: morning
  8. AMIODARONE [Concomitant]
  9. OMEPRAZOLE [Concomitant]
  10. DAFALGAN [Concomitant]
  11. METFORMIN [Concomitant]

REACTIONS (2)
  - Haemorrhagic stroke [Fatal]
  - Lung disorder [Fatal]
